FAERS Safety Report 16094084 (Version 1)
Quarter: 2019Q1

REPORT INFORMATION
  Report Type: Spontaneous
  Country: US (occurrence: US)
  Receive Date: 20190215
  Receipt Date: 20190215
  Transmission Date: 20190418
  Serious: Yes (Other)
  Sender: FDA-Public Use
  Company Number: None

PATIENT
  Age: 8 Year
  Sex: Female
  Weight: 24.95 kg

DRUGS (1)
  1. CEFDINIR FOR ORAL SUSPENSION 250MG/5ML [Suspect]
     Active Substance: CEFDINIR
     Indication: STREPTOCOCCAL INFECTION
     Route: 048
     Dates: start: 20190106, end: 20190111

REACTIONS (1)
  - Urticaria [None]
